FAERS Safety Report 12435621 (Version 1)
Quarter: 2016Q2

REPORT INFORMATION
  Report Type: Spontaneous
  Country: US (occurrence: US)
  Receive Date: 20160603
  Receipt Date: 20160603
  Transmission Date: 20160815
  Serious: No
  Sender: FDA-Public Use
  Company Number: US-ROCHE-1686021

PATIENT
  Sex: Female

DRUGS (3)
  1. ACTEMRA [Suspect]
     Active Substance: TOCILIZUMAB
     Indication: RHEUMATOID ARTHRITIS
     Dosage: 162MG/0.9ML
     Route: 058
     Dates: start: 20140219
  2. ARAVA [Concomitant]
     Active Substance: LEFLUNOMIDE
  3. FLUTICASONE PROPIONATE. [Concomitant]
     Active Substance: FLUTICASONE PROPIONATE

REACTIONS (3)
  - Injection site erythema [Not Recovered/Not Resolved]
  - Cough [Not Recovered/Not Resolved]
  - Pain [Not Recovered/Not Resolved]
